FAERS Safety Report 9437562 (Version 5)
Quarter: 2014Q1

REPORT INFORMATION
  Report Type: Report from Study
  Country: JP (occurrence: JP)
  Receive Date: 20130802
  Receipt Date: 20140203
  Transmission Date: 20141002
  Serious: Yes (Hospitalization)
  Sender: FDA-Public Use
  Company Number: JP-PFIZER INC-2013220086

PATIENT
  Age: 80 Year
  Sex: Female
  Weight: 47.6 kg

DRUGS (12)
  1. XALKORI [Suspect]
     Indication: NON-SMALL CELL LUNG CANCER
     Dosage: 250 MG, 2X/DAY
     Route: 048
     Dates: start: 20130208, end: 20130218
  2. XALKORI [Suspect]
     Dosage: 200 MG, 2X/DAY
     Route: 048
     Dates: start: 20130221, end: 20130602
  3. XALKORI [Suspect]
     Dosage: 200 MG, 2X/DAY
     Route: 048
     Dates: start: 20130614, end: 20130806
  4. XALKORI [Suspect]
     Dosage: 250 MG, 1X/DAY
     Dates: start: 20130807
  5. MAGMITT [Concomitant]
     Dosage: 500 MG, 3X/DAY
     Route: 048
  6. GANATON [Concomitant]
     Dosage: 50 MG, 3X/DAY
     Route: 048
     Dates: start: 20130210
  7. LAXOBERON [Concomitant]
     Dosage: UNK
     Route: 048
     Dates: start: 20130215
  8. ZYPREXA [Concomitant]
     Dosage: 5 MG, 1X/DAY
     Route: 048
     Dates: start: 20130218
  9. ZYPREXA [Concomitant]
     Dosage: 2.5 MG, 1X/DAY
     Route: 048
     Dates: start: 20130522
  10. PARIET [Concomitant]
     Dosage: 10 MG, 1X/DAY
     Route: 048
     Dates: start: 20130304
  11. RHYTHMY [Concomitant]
     Dosage: 2 MG, AS NEEDED
     Route: 048
     Dates: start: 20130325
  12. VEEN D [Concomitant]
     Dosage: 500 ML, 1X/DAY
     Dates: start: 20130601, end: 20130602

REACTIONS (3)
  - Dyspnoea [Recovering/Resolving]
  - Hypoxia [Recovering/Resolving]
  - Pleural effusion [Recovering/Resolving]
